FAERS Safety Report 20838675 (Version 2)
Quarter: 2022Q2

REPORT INFORMATION
  Report Type: Spontaneous
  Country: US (occurrence: None)
  Receive Date: 20220517
  Receipt Date: 20220628
  Transmission Date: 20220720
  Serious: Yes (Other)
  Sender: FDA-Public Use
  Company Number: 2022A180246

PATIENT
  Age: 70 Year
  Sex: Female
  Weight: 61.2 kg

DRUGS (2)
  1. BEVESPI AEROSPHERE [Suspect]
     Active Substance: FORMOTEROL FUMARATE\GLYCOPYRROLATE
     Indication: Asthma
     Dosage: 9/4.8MCG 2 PUFFS TWICE DAILY
     Route: 055
  2. BEVESPI AEROSPHERE [Suspect]
     Active Substance: FORMOTEROL FUMARATE\GLYCOPYRROLATE
     Indication: Chronic obstructive pulmonary disease
     Dosage: 9/4.8MCG 2 PUFFS TWICE DAILY
     Route: 055

REACTIONS (11)
  - Fall [Recovered/Resolved with Sequelae]
  - Ankle fracture [Not Recovered/Not Resolved]
  - Gait disturbance [Unknown]
  - Cough [Not Recovered/Not Resolved]
  - Feeling abnormal [Not Recovered/Not Resolved]
  - Headache [Unknown]
  - Product use issue [Unknown]
  - Device use issue [Recovered/Resolved]
  - Device delivery system issue [Unknown]
  - Drug dose omission by device [Not Recovered/Not Resolved]
  - Wrong technique in device usage process [Unknown]

NARRATIVE: CASE EVENT DATE: 20220101
